FAERS Safety Report 20740452 (Version 4)
Quarter: 2022Q2

REPORT INFORMATION
  Report Type: Report from Study
  Country: US (occurrence: US)
  Receive Date: 20220422
  Receipt Date: 20220511
  Transmission Date: 20220721
  Serious: Yes (Death, Hospitalization)
  Sender: FDA-Public Use
  Company Number: US-TG THERAPEUTICS INC.-TGT002561

PATIENT
  Age: 82 Year
  Sex: Male
  Weight: 86 kg

DRUGS (2)
  1. UBLITUXIMAB [Suspect]
     Active Substance: UBLITUXIMAB
     Indication: Non-Hodgkin^s lymphoma
     Dosage: 900 MILLIGRAM, Q 3 MONTHS
     Route: 042
     Dates: start: 20190605, end: 20211124
  2. UMBRALISIB [Suspect]
     Active Substance: UMBRALISIB
     Indication: Non-Hodgkin^s lymphoma
     Dosage: 800 MILLIGRAM, QD
     Route: 048
     Dates: start: 20190605

REACTIONS (1)
  - COVID-19 pneumonia [Fatal]

NARRATIVE: CASE EVENT DATE: 20220405
